FAERS Safety Report 24277253 (Version 1)
Quarter: 2024Q3

REPORT INFORMATION
  Report Type: Spontaneous
  Country: FR (occurrence: FR)
  Receive Date: 20240903
  Receipt Date: 20240903
  Transmission Date: 20241016
  Serious: Yes (Other)
  Sender: PIERRE FABRE MEDICAMENT
  Company Number: None

PATIENT

DRUGS (3)
  1. PROPRANOLOL [Suspect]
     Active Substance: PROPRANOLOL HYDROCHLORIDE
     Indication: Foetal exposure during pregnancy
     Dosage: 40 MG, BID (2/DAY)
     Route: 064
     Dates: start: 20240507, end: 20240607
  2. LOVENOX [Suspect]
     Active Substance: ENOXAPARIN SODIUM
     Indication: Foetal exposure during pregnancy
     Dosage: 7000 [IU], BID (2/DAY)
     Route: 064
     Dates: start: 20240527, end: 20240607
  3. BISOPROLOL FUMARATE [Suspect]
     Active Substance: BISOPROLOL FUMARATE
     Indication: Foetal exposure during pregnancy
     Dosage: 3.75 MG DAILY
     Route: 064
     Dates: start: 20231011, end: 20240507

REACTIONS (5)
  - Foetal growth restriction [Recovering/Resolving]
  - Maternal exposure during pregnancy [Unknown]
  - Product use in unapproved indication [Unknown]
  - Product use issue [Unknown]
  - Off label use [Unknown]

NARRATIVE: CASE EVENT DATE: 20231011
